FAERS Safety Report 5797714-8 (Version None)
Quarter: 2008Q2

REPORT INFORMATION
  Report Type: 
  Country: None (occurrence: None)
  Receive Date: 20080618
  Receipt Date: 20070704
  Transmission Date: 20081010
  Serious: Yes (Other)
  Sender: FDA-Public Use
  Company Number: 200713715US

PATIENT
  Age: 75 Year
  Sex: Male

DRUGS (16)
  1. LANTUS [Suspect]
     Indication: TYPE 2 DIABETES MELLITUS
     Dosage: 36 U QD
     Dates: start: 20070501
  2. OPTICLIK [Suspect]
     Indication: TYPE 2 DIABETES MELLITUS
     Dates: start: 20070501
  3. PREDNISONE TAB [Suspect]
  4. RITUXAN [Suspect]
  5. PROCRIT [Suspect]
  6. NEULASTA [Suspect]
  7. POTASSIUM CHLORIDE [Concomitant]
  8. FUROSEMIDE [Concomitant]
  9. COREG [Concomitant]
  10. PLAVIX [Concomitant]
  11. ACETAYLSALICYLIC ACID (ASPIRIN) [Concomitant]
  12. SIMVASTATIN [Concomitant]
  13. PROBIOTIC ACIDOPHILUS [Concomitant]
  14. FISH OIL (OMEGA 3) [Concomitant]
  15. PANTOPRAZOLE SODIUM [Concomitant]
  16. METFORMIN HCL [Concomitant]

REACTIONS (1)
  - HYPERGLYCAEMIA [None]
